FAERS Safety Report 20730781 (Version 2)
Quarter: 2024Q2

REPORT INFORMATION
  Report Type: Spontaneous
  Country: US (occurrence: US)
  Receive Date: 20220420
  Receipt Date: 20240415
  Transmission Date: 20240715
  Serious: No
  Sender: FDA-Public Use
  Company Number: US-ASTELLAS-2021US014267

PATIENT
  Age: 73 Year
  Sex: Male

DRUGS (4)
  1. LEXISCAN [Suspect]
     Active Substance: REGADENOSON
     Indication: Product used for unknown indication
     Dosage: UNK, UNKNOWN FREQ.(0.4MG/5ML)
     Route: 065
     Dates: start: 20210416, end: 20210416
  2. LEXISCAN [Suspect]
     Active Substance: REGADENOSON
     Indication: Product used for unknown indication
     Dosage: UNK, UNKNOWN FREQ.(0.4MG/5ML)
     Route: 065
     Dates: start: 20210416, end: 20210416
  3. LEXISCAN [Suspect]
     Active Substance: REGADENOSON
     Indication: Product used for unknown indication
     Dosage: UNK, UNKNOWN FREQ.(0.4MG/5ML)
     Route: 065
     Dates: start: 20210416, end: 20210416
  4. LEXISCAN [Suspect]
     Active Substance: REGADENOSON
     Indication: Product used for unknown indication
     Dosage: UNK, UNKNOWN FREQ.(0.4MG/5ML)
     Route: 065
     Dates: start: 20210416, end: 20210416

REACTIONS (2)
  - Orthostatic hypotension [Unknown]
  - Vertigo [Unknown]

NARRATIVE: CASE EVENT DATE: 20210416
